FAERS Safety Report 17755975 (Version 1)
Quarter: 2020Q2

REPORT INFORMATION
  Report Type: Spontaneous
  Country: US (occurrence: US)
  Receive Date: 20200507
  Receipt Date: 20200507
  Transmission Date: 20200714
  Serious: Yes (Other)
  Sender: FDA-Public Use
  Company Number: None

PATIENT
  Age: 33 Year
  Sex: Female
  Weight: 61.29 kg

DRUGS (2)
  1. PERJETA [Concomitant]
     Active Substance: PERTUZUMAB
     Dates: start: 20200417, end: 20200417
  2. KANJINTI [Suspect]
     Active Substance: TRASTUZUMAB-ANNS
     Indication: BREAST CANCER METASTATIC
     Route: 040
     Dates: start: 20200417, end: 20200417

REACTIONS (2)
  - Tremor [None]
  - Adverse reaction [None]

NARRATIVE: CASE EVENT DATE: 20200417
